FAERS Safety Report 12480604 (Version 2)
Quarter: 2016Q2

REPORT INFORMATION
  Report Type: Spontaneous
  Country: JP (occurrence: JP)
  Receive Date: 20160620
  Receipt Date: 20160629
  Transmission Date: 20160815
  Serious: Yes (Hospitalization)
  Sender: FDA-Public Use
  Company Number: JP-GLAXOSMITHKLINE-JP2016JPN084105

PATIENT
  Age: 64 Year
  Sex: Female

DRUGS (13)
  1. MABUTEROL HYDROCHLORIDE [Concomitant]
     Indication: ASPIRIN-EXACERBATED RESPIRATORY DISEASE
     Dosage: 75 ?G, 1D
     Dates: start: 20040512
  2. PREDNISOLONE. [Concomitant]
     Active Substance: PREDNISOLONE
     Dosage: 10 MG, 1D
     Dates: start: 2004
  3. AMINOPHYLLINE HYDRATE [Concomitant]
     Indication: ASPIRIN-EXACERBATED RESPIRATORY DISEASE
     Dosage: UNK
  4. BUDESONIDE. [Concomitant]
     Active Substance: BUDESONIDE
     Indication: ASPIRIN-EXACERBATED RESPIRATORY DISEASE
     Dosage: 1600 ?G, 1D
     Dates: start: 20040512
  5. BECLOMETASONE [Concomitant]
     Active Substance: BECLOMETHASONE DIPROPIONATE
     Dosage: 800 ?G, 1D
     Dates: start: 2004
  6. TIOTROPIUM BROMIDE HYDRATE [Concomitant]
     Dosage: 18 ?G, 1D
     Dates: start: 20041211
  7. METHYLPREDNISOLONE. [Concomitant]
     Active Substance: METHYLPREDNISOLONE
     Indication: ASPIRIN-EXACERBATED RESPIRATORY DISEASE
     Dosage: 4 MG, 1D
     Dates: start: 20040512
  8. HYDROCORTISONE. [Concomitant]
     Active Substance: HYDROCORTISONE
     Indication: ASPIRIN-EXACERBATED RESPIRATORY DISEASE
     Dosage: UNK
  9. FLUTIDE [Suspect]
     Active Substance: FLUTICASONE PROPIONATE
     Indication: ASPIRIN-EXACERBATED RESPIRATORY DISEASE
     Dosage: 800 UG, 1D
     Route: 055
     Dates: start: 2004
  10. TULOBUTEROL HYDROCHLORIDE [Concomitant]
     Active Substance: TULOBUTEROL HYDROCHLORIDE
     Indication: ASPIRIN-EXACERBATED RESPIRATORY DISEASE
     Dosage: 2 MG, 1D
     Dates: start: 20040512, end: 2004
  11. SEREVENT DISKUS [Suspect]
     Active Substance: SALMETEROL XINAFOATE
     Indication: ASPIRIN-EXACERBATED RESPIRATORY DISEASE
     Dosage: 100 ?G, 1D
     Route: 055
     Dates: start: 20040907, end: 20061107
  12. METHYLPREDNISOLONE. [Concomitant]
     Active Substance: METHYLPREDNISOLONE
     Dosage: 8 MG, 1D
     Dates: start: 2004
  13. MONTELUKAST SODIUM. [Concomitant]
     Active Substance: MONTELUKAST SODIUM
     Indication: ASPIRIN-EXACERBATED RESPIRATORY DISEASE
     Dosage: 10 MG, 1D
     Dates: start: 20040512

REACTIONS (1)
  - Aspirin-exacerbated respiratory disease [Recovering/Resolving]
